FAERS Safety Report 7668625-8 (Version None)
Quarter: 2011Q3

REPORT INFORMATION
  Report Type: 
  Country: None (occurrence: None)
  Receive Date: 20110808
  Receipt Date: 20110808
  Transmission Date: 20111222
  Serious: Yes (Life-Threatening, Hospitalization)
  Sender: FDA-Public Use
  Company Number: None

PATIENT
  Age: 58 Year
  Sex: Male
  Weight: 96 kg

DRUGS (1)
  1. NAPROXEN [Suspect]
     Dosage: 440 MG
     Route: 048

REACTIONS (2)
  - ALCOHOL USE [None]
  - PEPTIC ULCER HAEMORRHAGE [None]
